FAERS Safety Report 14593064 (Version 3)
Quarter: 2018Q2

REPORT INFORMATION
  Report Type: Report from Study
  Country: TW (occurrence: TW)
  Receive Date: 20180302
  Receipt Date: 20180517
  Transmission Date: 20180711
  Serious: Yes (Hospitalization)
  Sender: FDA-Public Use
  Company Number: TW-BAUSCH-BL-2018-005764

PATIENT
  Age: 38 Year
  Sex: Male
  Weight: 92 kg

DRUGS (2)
  1. CELECOXIB. [Concomitant]
     Active Substance: CELECOXIB
     Indication: AXIAL SPONDYLOARTHRITIS
     Route: 048
     Dates: start: 20161219
  2. KHK4827 (CODE NOT BROKEN) [Suspect]
     Active Substance: BRODALUMAB
     Indication: AXIAL SPONDYLOARTHRITIS
     Route: 058
     Dates: start: 20171212, end: 20180123

REACTIONS (1)
  - Cellulitis [Recovered/Resolved]

NARRATIVE: CASE EVENT DATE: 20180201
